FAERS Safety Report 10142272 (Version 1)
Quarter: 2014Q2

REPORT INFORMATION
  Report Type: Spontaneous
  Country: US (occurrence: US)
  Receive Date: 20140429
  Receipt Date: 20140429
  Transmission Date: 20141212
  Serious: Yes (Other)
  Sender: FDA-Public Use
  Company Number: US-MILLENNIUM PHARMACEUTICALS, INC.-2014TUS003303

PATIENT
  Sex: 0

DRUGS (1)
  1. BRINTELLIX [Suspect]
     Indication: MAJOR DEPRESSION
     Route: 048

REACTIONS (5)
  - Suicidal ideation [Unknown]
  - Somnolence [Unknown]
  - Feeling abnormal [Unknown]
  - Dizziness [Unknown]
  - Nausea [Unknown]
